FAERS Safety Report 13253828 (Version 3)
Quarter: 2017Q1

REPORT INFORMATION
  Report Type: Spontaneous
  Country: US (occurrence: US)
  Receive Date: 20170220
  Receipt Date: 20170329
  Transmission Date: 20170428
  Serious: No
  Sender: FDA-Public Use
  Company Number: US-TEVA-727165ACC

PATIENT
  Age: 44 Year
  Sex: Female

DRUGS (13)
  1. COPAXONE [Suspect]
     Active Substance: GLATIRAMER ACETATE
     Indication: MULTIPLE SCLEROSIS
     Route: 058
  2. NITROFURANTOIN. [Concomitant]
     Active Substance: NITROFURANTOIN
  3. FISH OIL [Concomitant]
     Active Substance: FISH OIL
  4. DIAZEPAM. [Concomitant]
     Active Substance: DIAZEPAM
  5. FERROUS SULFATE. [Concomitant]
     Active Substance: FERROUS SULFATE
  6. CARBAMAZEPINE. [Concomitant]
     Active Substance: CARBAMAZEPINE
  7. AMPYRA [Concomitant]
     Active Substance: DALFAMPRIDINE
  8. BACLOFEN. [Concomitant]
     Active Substance: BACLOFEN
  9. GABAPENTIN. [Concomitant]
     Active Substance: GABAPENTIN
  10. DEXAMETHASONE. [Concomitant]
     Active Substance: DEXAMETHASONE
  11. DULOXETINE. [Concomitant]
     Active Substance: DULOXETINE
  12. LORAZEPAM. [Concomitant]
     Active Substance: LORAZEPAM
  13. METHYL PREDNISOLONE [Concomitant]
     Active Substance: METHYLPREDNISOLONE

REACTIONS (4)
  - Limb discomfort [Unknown]
  - Fatigue [Unknown]
  - Bladder disorder [Unknown]
  - Drug dose omission [Unknown]

NARRATIVE: CASE EVENT DATE: 201701
